FAERS Safety Report 8911305 (Version 1)
Quarter: 2012Q4

REPORT INFORMATION
  Report Type: Report from Study
  Country: DE (occurrence: DE)
  Receive Date: 20121115
  Receipt Date: 20121115
  Transmission Date: 20130627
  Serious: Yes (Hospitalization)
  Sender: FDA-Public Use
  Company Number: DE-ABBOTT-12P-062-0991061-00

PATIENT
  Age: 39 Year
  Sex: Male
  Weight: 70 kg

DRUGS (2)
  1. HUMIRA PRE-FILLED SYRINGE [Suspect]
     Indication: CROHN^S DISEASE
     Route: 058
     Dates: start: 20111208
  2. PREDNISOLONE [Suspect]
     Indication: CROHN^S DISEASE
     Route: 048
     Dates: start: 20120506

REACTIONS (3)
  - Ileal stenosis [Unknown]
  - Abdominal adhesions [Unknown]
  - Herpes zoster [Recovered/Resolved]
